FAERS Safety Report 18549962 (Version 2)
Quarter: 2020Q4

REPORT INFORMATION
  Report Type: Other
  Country: CZ (occurrence: CZ)
  Receive Date: 20201126
  Receipt Date: 20201214
  Transmission Date: 20210114
  Serious: Yes (Life-Threatening, Other)
  Sender: FDA-Public Use
  Company Number: CZ-ROCHE-2698598

PATIENT
  Age: 82 Year
  Sex: Male

DRUGS (15)
  1. CAPECITABINE. [Suspect]
     Active Substance: CAPECITABINE
     Indication: APPENDIX CANCER
     Dosage: UNK, CYCLE
     Route: 065
  2. FOLINIC ACID [Suspect]
     Active Substance: LEUCOVORIN
     Dosage: UNK UNK, CYCLE
     Route: 065
     Dates: start: 20121122
  3. FOLINIC ACID [Suspect]
     Active Substance: LEUCOVORIN
     Dosage: 3 CYCLES OF FOLFOX-4
     Route: 065
     Dates: start: 20121122
  4. LONSURF [Suspect]
     Active Substance: TIPIRACIL HYDROCHLORIDE\TRIFLURIDINE
     Indication: APPENDIX CANCER
     Dosage: A TOTAL OF 20 CYCLE
     Route: 065
  5. LONSURF [Suspect]
     Active Substance: TIPIRACIL HYDROCHLORIDE\TRIFLURIDINE
     Dosage: UNK CYCLES
     Route: 048
     Dates: start: 201707
  6. OXALIPLATIN. [Suspect]
     Active Substance: OXALIPLATIN
     Indication: APPENDIX CANCER
     Dosage: UNK UNK CYCLE
     Route: 065
     Dates: start: 201211
  7. OXALIPLATIN. [Suspect]
     Active Substance: OXALIPLATIN
     Dosage: UNK UNK, CYCLE
     Route: 065
     Dates: start: 20121122
  8. RALTITREXED [Suspect]
     Active Substance: RALTITREXED
     Indication: GASTROINTESTINAL TOXICITY
     Dosage: UNK
     Route: 065
  9. 5-FLUOROURACIL [Suspect]
     Active Substance: FLUOROURACIL
     Indication: APPENDIX CANCER
     Dosage: UNK UNK, CYCLE
     Route: 065
     Dates: start: 201211
  10. 5-FLUOROURACIL [Suspect]
     Active Substance: FLUOROURACIL
     Dosage: UNK UNK, CYCLE
     Route: 065
     Dates: start: 20121122
  11. IRINOTECAN [Suspect]
     Active Substance: IRINOTECAN
     Indication: APPENDIX CANCER
     Dosage: UNK UNK, CYCLE
     Route: 065
  12. FOLINIC ACID [Suspect]
     Active Substance: LEUCOVORIN
     Indication: APPENDIX CANCER
     Dosage: UNK UNK, CYCLE
     Route: 065
     Dates: start: 201211
  13. OXALIPLATIN. [Suspect]
     Active Substance: OXALIPLATIN
     Dosage: 3 CYCLES OF FOLFOX-4
     Route: 065
     Dates: start: 20121122
  14. CALCIUM FOLINATE [Suspect]
     Active Substance: LEUCOVORIN CALCIUM
     Indication: APPENDIX CANCER
     Dosage: CYCLE
     Route: 065
     Dates: start: 201211
  15. FILGRASTIM [Suspect]
     Active Substance: FILGRASTIM
     Indication: APPENDIX CANCER
     Dosage: UNK, CYCLE
     Route: 065

REACTIONS (5)
  - Condition aggravated [Recovered/Resolved]
  - Neutropenia [Recovered/Resolved]
  - Anaemia [Recovered/Resolved]
  - Disease progression [Recovered/Resolved]
  - Haematotoxicity [Recovering/Resolving]

NARRATIVE: CASE EVENT DATE: 2020
